FAERS Safety Report 7043762-X (Version None)
Quarter: 2010Q4

REPORT INFORMATION
  Report Type: 
  Country: None (occurrence: None)
  Receive Date: 20101013
  Receipt Date: 20101001
  Transmission Date: 20110411
  Serious: Yes (Hospitalization)
  Sender: FDA-Public Use
  Company Number: US-WATSON-2010-13497

PATIENT
  Age: 85 Year
  Sex: Male

DRUGS (5)
  1. LISINOPRIL [Suspect]
     Indication: PRODUCT USED FOR UNKNOWN INDICATION
     Dosage: 40 MG, DAILY
     Route: 048
  2. TIZANIDINE HCL [Suspect]
     Indication: PAIN
     Dosage: 2 MG EVERY 8 HOURS
     Route: 048
  3. CITALOPRAM HYDROBROMIDE [Suspect]
     Indication: DEPRESSION
     Dosage: 60 MG, DAILY
     Route: 048
  4. OMEPRAZOLE (WATSON LABORATORIES) [Suspect]
     Indication: GASTROOESOPHAGEAL REFLUX DISEASE
     Dosage: 20 MG, DAILY
     Route: 048
  5. SULFAMETHOXAZOLE/TRIMETHOPRIM 400/80 (WATSON LABORATORIES) [Suspect]
     Indication: ABSCESS
     Dosage: UNK
     Route: 048

REACTIONS (6)
  - BLOOD CREATININE INCREASED [None]
  - BRADYCARDIA [None]
  - DRUG INTERACTION [None]
  - HYPERKALAEMIA [None]
  - HYPOTENSION [None]
  - RENAL IMPAIRMENT [None]
